FAERS Safety Report 9647509 (Version 2)
Quarter: 2013Q4

REPORT INFORMATION
  Report Type: Spontaneous
  Country: FR (occurrence: FR)
  Receive Date: 20131028
  Receipt Date: 20131118
  Transmission Date: 20140711
  Serious: Yes (Hospitalization, Other)
  Sender: FDA-Public Use
  Company Number: FR-ASTRAZENECA-2013SE78065

PATIENT
  Age: 82 Year
  Sex: Female

DRUGS (10)
  1. KENZEN [Suspect]
     Indication: PRODUCT USED FOR UNKNOWN INDICATION
     Route: 048
     Dates: end: 20130912
  2. OMEPRAZOLE [Suspect]
     Route: 048
  3. CRESTOR [Suspect]
     Route: 048
     Dates: end: 20130912
  4. CORDARONE [Suspect]
     Route: 048
     Dates: start: 2007, end: 20130912
  5. FURADANTINE [Suspect]
     Route: 048
     Dates: end: 20130912
  6. LASILIX [Suspect]
     Route: 048
     Dates: end: 20130912
  7. CARDENSIEL [Suspect]
     Route: 048
     Dates: end: 20130912
  8. KARDEGIC [Suspect]
     Route: 048
     Dates: end: 20130912
  9. ZANIDIP [Suspect]
     Route: 048
     Dates: end: 20130912
  10. CALCIDOSE VITAMINE D [Suspect]
     Route: 048
     Dates: end: 20130912

REACTIONS (1)
  - Interstitial lung disease [Not Recovered/Not Resolved]
